FAERS Safety Report 25988031 (Version 1)
Quarter: 2025Q4

REPORT INFORMATION
  Report Type: Spontaneous
  Country: EU (occurrence: EU)
  Receive Date: 20251103
  Receipt Date: 20251103
  Transmission Date: 20260118
  Serious: Yes (Hospitalization)
  Sender: MERCK SHARP & DOHME LLC
  Company Number: None

PATIENT
  Age: 69 Year
  Sex: Female

DRUGS (2)
  1. KEYTRUDA [Suspect]
     Active Substance: PEMBROLIZUMAB
     Indication: Invasive ductal breast carcinoma
     Dosage: 200 MG EVERY 21 DAYS
     Route: 042
     Dates: start: 20250523, end: 20250912
  2. MYOCET LIPOSOMAL 50 MG POWDER, DISPERSION AND SOLVENT FOR CONCENTRA... [Concomitant]
     Indication: Invasive ductal breast carcinoma
     Dosage: 60 - 75 MG/M2 EVERY 21 DAYS.
     Route: 042
     Dates: start: 20250822

REACTIONS (3)
  - Acute kidney injury [Recovering/Resolving]
  - Tubulointerstitial nephritis [Recovering/Resolving]
  - Immune-mediated nephritis [Recovering/Resolving]

NARRATIVE: CASE EVENT DATE: 20250912
